FAERS Safety Report 16299378 (Version 1)
Quarter: 2019Q2

REPORT INFORMATION
  Report Type: Spontaneous
  Country: US (occurrence: US)
  Receive Date: 20190510
  Receipt Date: 20190510
  Transmission Date: 20190711
  Serious: No
  Sender: FDA-Public Use
  Company Number: US-BAUSCH-BL-2019-012522

PATIENT
  Sex: Female

DRUGS (1)
  1. ATIVAN [Suspect]
     Active Substance: LORAZEPAM
     Indication: PRODUCT USED FOR UNKNOWN INDICATION
     Dosage: SPLITTING THOSE TABLETS INTO HALVES COULD NOT SPLIT INTO FOURTHS, CRUMBLED AND WERE NOT SCORED.
     Route: 065

REACTIONS (3)
  - Dry mouth [Unknown]
  - Somnolence [Unknown]
  - Wrong technique in product usage process [Unknown]
